FAERS Safety Report 13590958 (Version 1)
Quarter: 2017Q2

REPORT INFORMATION
  Report Type: Spontaneous
  Country: US (occurrence: US)
  Receive Date: 20170528
  Receipt Date: 20170528
  Transmission Date: 20170830
  Serious: No
  Sender: FDA-Public Use
  Company Number: None

PATIENT
  Age: 62 Year
  Sex: Male
  Weight: 72.7 kg

DRUGS (3)
  1. DEXAMETHASONE. [Suspect]
     Active Substance: DEXAMETHASONE
     Dates: end: 20170428
  2. VELCADE [Concomitant]
     Active Substance: BORTEZOMIB
     Dates: end: 20170420
  3. LENALIDOMIDE (CC-5013) [Suspect]
     Active Substance: LENALIDOMIDE
     Dates: end: 20170430

REACTIONS (3)
  - Pulmonary embolism [None]
  - Chest discomfort [None]
  - Deep vein thrombosis [None]

NARRATIVE: CASE EVENT DATE: 20170517
